FAERS Safety Report 14268125 (Version 1)
Quarter: 2017Q4

REPORT INFORMATION
  Report Type: Spontaneous
  Country: JP (occurrence: JP)
  Receive Date: 20171211
  Receipt Date: 20171211
  Transmission Date: 20180321
  Serious: Yes (Other)
  Sender: FDA-Public Use
  Company Number: JP-BRISTOL-MYERS SQUIBB COMPANY-BMSM2015-002269

PATIENT
  Age: 42 Year
  Sex: Female

DRUGS (3)
  1. RHEUMATREX [Concomitant]
     Active Substance: METHOTREXATE SODIUM
     Indication: PRODUCT USED FOR UNKNOWN INDICATION
     Dosage: 8 MG, QWK
     Route: 048
  2. FEBURIC [Concomitant]
     Active Substance: FEBUXOSTAT
     Indication: PRODUCT USED FOR UNKNOWN INDICATION
     Dosage: 10 MG, QD
     Route: 048
  3. KENACORT-A [Suspect]
     Active Substance: TRIAMCINOLONE
     Indication: TRIGGER FINGER
     Dosage: 20 MG, UNK
     Route: 014
     Dates: start: 201001, end: 201208

REACTIONS (1)
  - Tendon sheath disorder [Recovered/Resolved]

NARRATIVE: CASE EVENT DATE: 20120901
